FAERS Safety Report 6486595-5 (Version None)
Quarter: 2009Q4

REPORT INFORMATION
  Report Type: 
  Country: None (occurrence: None)
  Receive Date: 20091209
  Receipt Date: 20091209
  Transmission Date: 20100525
  Serious: Yes (Hospitalization)
  Sender: FDA-Public Use
  Company Number: None

PATIENT
  Sex: Male
  Weight: 85 kg

DRUGS (2)
  1. 5-AZACITIDINE 75MG/ M2 IV X 7 DAYS CELGENE [Suspect]
     Indication: ACUTE MYELOID LEUKAEMIA
     Dosage: 75MG/M2 7 DAYS IV DRIP
     Route: 041
     Dates: start: 20091113, end: 20091119
  2. MIDOSTAURIN 25MG PO BID X 14 DAYS NOVARTIS [Suspect]
     Indication: ACUTE MYELOID LEUKAEMIA
     Dosage: 25MG 14 DAYS PO
     Route: 048
     Dates: start: 20091120, end: 20091122

REACTIONS (4)
  - GASTROINTESTINAL HAEMORRHAGE [None]
  - HAEMATOCRIT DECREASED [None]
  - LARGE INTESTINE PERFORATION [None]
  - PYREXIA [None]
